FAERS Safety Report 19743925 (Version 1)
Quarter: 2021Q3

REPORT INFORMATION
  Report Type: Spontaneous
  Country: US (occurrence: US)
  Receive Date: 20210823
  Receipt Date: 20210823
  Transmission Date: 20211014
  Serious: No
  Sender: FDA-Public Use
  Company Number: None

PATIENT
  Sex: Female

DRUGS (2)
  1. TEMOZOLOMIDE 20MG [Suspect]
     Active Substance: TEMOZOLOMIDE
     Indication: BRAIN NEOPLASM MALIGNANT
     Dosage: ?          OTHER DOSE:1;OTHER FREQUENCY:AT BEDTIME/5DS PER;?
     Route: 048
     Dates: start: 202104
  2. TEMOZOLOMIDE 140MG AMNEAL PHARMACEUTICALS [Suspect]
     Active Substance: TEMOZOLOMIDE
     Indication: BRAIN NEOPLASM MALIGNANT
     Dosage: ?          OTHER DOSE:1;OTHER FREQUENCY:QD/5DS PER 28DS.;?
     Route: 048
     Dates: start: 202102

REACTIONS (3)
  - Asthenia [None]
  - Dyspnoea [None]
  - Pulmonary embolism [None]
